FAERS Safety Report 8430220-0 (Version None)
Quarter: 2012Q2

REPORT INFORMATION
  Report Type: 
  Country: None (occurrence: None)
  Receive Date: 20120612
  Receipt Date: 20120601
  Transmission Date: 20120825
  Serious: Yes (Hospitalization, Other)
  Sender: FDA-Public Use
  Company Number: US-BRISTOL-MYERS SQUIBB COMPANY-16656217

PATIENT
  Age: 88 Year
  Sex: Male
  Weight: 61 kg

DRUGS (6)
  1. LIPITOR [Concomitant]
  2. PREDNISONE [Concomitant]
  3. PLAVIX [Concomitant]
  4. AVAPRO [Suspect]
     Indication: HYPERTENSION
     Dates: end: 20120201
  5. ASPIRIN [Concomitant]
  6. LOPRESSOR [Concomitant]

REACTIONS (5)
  - HAEMORRHAGE [None]
  - VOMITING [None]
  - MYOCARDIAL INFARCTION [None]
  - PULMONARY THROMBOSIS [None]
  - FALL [None]
